FAERS Safety Report 6439341-5 (Version None)
Quarter: 2009Q4

REPORT INFORMATION
  Report Type: 
  Country: None (occurrence: None)
  Receive Date: 20091110
  Receipt Date: 20091026
  Transmission Date: 20100525
  Serious: Yes (Death, Hospitalization)
  Sender: FDA-Public Use
  Company Number: 2009AC000334

PATIENT
  Sex: Male

DRUGS (17)
  1. DIGOXIN [Suspect]
     Dosage: PO
     Route: 048
     Dates: start: 20070427
  2. *ROXANOL [Concomitant]
  3. ATIVAN [Concomitant]
  4. TYLENOL /0020001/ [Concomitant]
  5. COMPAZINE /00013302/ [Concomitant]
  6. COLACE [Concomitant]
  7. PROVIGIL [Concomitant]
  8. POTASSIUM [Concomitant]
  9. ZESTRIL [Concomitant]
  10. FUROSEMIDE [Concomitant]
  11. LIPITOR [Concomitant]
  12. PREDNISONE TAB [Concomitant]
  13. METHOTREXATE [Concomitant]
  14. PROTONIX /01263201/ [Concomitant]
  15. LEXAPRO [Concomitant]
  16. ASPIRIN [Concomitant]
  17. DULCOLAX [Concomitant]

REACTIONS (22)
  - ACUTE RESPIRATORY FAILURE [None]
  - ADRENAL INSUFFICIENCY [None]
  - ANAEMIA [None]
  - BUNDLE BRANCH BLOCK RIGHT [None]
  - CARDIOMYOPATHY [None]
  - CEREBROVASCULAR ACCIDENT [None]
  - CHRONIC OBSTRUCTIVE PULMONARY DISEASE [None]
  - DEMENTIA [None]
  - DYSLIPIDAEMIA [None]
  - ECONOMIC PROBLEM [None]
  - HYPERGLYCAEMIA [None]
  - HYPERTENSION [None]
  - ILL-DEFINED DISORDER [None]
  - INJURY [None]
  - LEUKOCYTOSIS [None]
  - MULTIPLE INJURIES [None]
  - OSTEOARTHRITIS [None]
  - PNEUMONIA ASPIRATION [None]
  - PNEUMONIA STAPHYLOCOCCAL [None]
  - SEPTIC SHOCK [None]
  - SURGERY [None]
  - THROMBOCYTOPENIA [None]
